FAERS Safety Report 17349885 (Version 2)
Quarter: 2020Q1

REPORT INFORMATION
  Report Type: Spontaneous
  Country: US (occurrence: US)
  Receive Date: 20200130
  Receipt Date: 20200225
  Transmission Date: 20200409
  Serious: Yes (Hospitalization, Other)
  Sender: FDA-Public Use
  Company Number: US-ASTELLAS-2020US003154

PATIENT
  Age: 72 Year
  Sex: Male

DRUGS (1)
  1. XOSPATA [Suspect]
     Active Substance: GILTERITINIB
     Indication: FMS-LIKE TYROSINE KINASE 3 POSITIVE
     Route: 048
     Dates: start: 201901, end: 202001

REACTIONS (1)
  - Acute myocardial infarction [Recovering/Resolving]
